FAERS Safety Report 5918722-X (Version None)
Quarter: 2008Q4

REPORT INFORMATION
  Report Type: 
  Country: None (occurrence: None)
  Receive Date: 20081015
  Receipt Date: 20080630
  Transmission Date: 20090506
  Serious: No
  Sender: FDA-Public Use
  Company Number: US-ASTRAZENECA-2008UW13129

PATIENT
  Age: 29 Year
  Sex: Female
  Weight: 81.7 kg

DRUGS (11)
  1. SYMBICORT [Suspect]
     Indication: ASTHMA
     Dosage: 2 PUFF BID 160/4.5 MCG
     Route: 055
     Dates: start: 20080625, end: 20080627
  2. LEVOTHYROXINE SODIUM [Concomitant]
  3. MINOCYCLINE HCL [Concomitant]
  4. NORVASC [Concomitant]
  5. ETODOLAC [Concomitant]
  6. PROTONIX [Concomitant]
  7. TOPAMAX [Concomitant]
  8. ALBUTEROL [Concomitant]
  9. XYZAL [Concomitant]
  10. VERAMEX [Concomitant]
  11. MULTI-VITAMINS [Concomitant]

REACTIONS (2)
  - SENSATION OF FOREIGN BODY [None]
  - THROAT TIGHTNESS [None]
